FAERS Safety Report 18314098 (Version 1)
Quarter: 2020Q3

REPORT INFORMATION
  Report Type: Spontaneous
  Country: US (occurrence: US)
  Receive Date: 20200925
  Receipt Date: 20200925
  Transmission Date: 20201103
  Serious: Yes (Other)
  Sender: FDA-Public Use
  Company Number: US-009507513-2009USA008939

PATIENT
  Sex: Male
  Weight: 107.48 kg

DRUGS (23)
  1. VOLTAREN [Concomitant]
     Active Substance: DICLOFENAC SODIUM
  2. KEYTRUDA [Suspect]
     Active Substance: PEMBROLIZUMAB
     Dosage: UNK
  3. PREDNISONE. [Concomitant]
     Active Substance: PREDNISONE
  4. ONDANSETRON HYDROCHLORIDE. [Concomitant]
     Active Substance: ONDANSETRON HYDROCHLORIDE
  5. TRESIBA [Concomitant]
     Active Substance: INSULIN DEGLUDEC
  6. LASIX [Concomitant]
     Active Substance: FUROSEMIDE
  7. PEPCID [Concomitant]
     Active Substance: FAMOTIDINE
  8. ELIQUIS [Concomitant]
     Active Substance: APIXABAN
  9. LEVOTHYROXINE SODIUM. [Concomitant]
     Active Substance: LEVOTHYROXINE SODIUM
  10. LACTULOSE. [Concomitant]
     Active Substance: LACTULOSE
  11. SPIRONOLACTONE. [Concomitant]
     Active Substance: SPIRONOLACTONE
  12. MEDIHONEY WOUND GEL [Concomitant]
  13. METOPROLOL TARTRATE. [Concomitant]
     Active Substance: METOPROLOL TARTRATE
  14. COMPAZINE [Concomitant]
     Active Substance: PROCHLORPERAZINE MALEATE
  15. NITROGLYCERIN. [Concomitant]
     Active Substance: NITROGLYCERIN
  16. MUPIROCIN. [Concomitant]
     Active Substance: MUPIROCIN
  17. HUMALOG [Concomitant]
     Active Substance: INSULIN LISPRO
  18. CHOLECALCIFEROL [Concomitant]
     Active Substance: CHOLECALCIFEROL
  19. PRINIVIL [Concomitant]
     Active Substance: LISINOPRIL
  20. LENVATINIB MESYLATE [Suspect]
     Active Substance: LENVATINIB MESYLATE
     Indication: PSORIASIS
     Dosage: 12 MILLIGRAM, ONCE DAILY
     Route: 048
     Dates: start: 20190829
  21. LENVATINIB MESYLATE [Suspect]
     Active Substance: LENVATINIB MESYLATE
     Indication: HEPATIC CANCER
  22. CABOMETYX [Concomitant]
     Active Substance: CABOZANTINIB S-MALATE
  23. XIFAXAN [Concomitant]
     Active Substance: RIFAXIMIN

REACTIONS (4)
  - Myocardial infarction [Unknown]
  - Paralysis [Unknown]
  - Impaired healing [Unknown]
  - Blister [Unknown]

NARRATIVE: CASE EVENT DATE: 2020
